FAERS Safety Report 6306901-1 (Version None)
Quarter: 2009Q3

REPORT INFORMATION
  Report Type: 
  Country: None (occurrence: None)
  Receive Date: 20090811
  Receipt Date: 20090811
  Transmission Date: 20100115
  Serious: Yes (Other)
  Sender: FDA-Public Use
  Company Number: None

PATIENT
  Age: 55 Year
  Sex: Female
  Weight: 95.2554 kg

DRUGS (1)
  1. CYMBALTA [Suspect]
     Indication: PAIN
     Dosage: 30 MG 1/DAY PO
     Route: 048
     Dates: start: 20090726, end: 20090802

REACTIONS (6)
  - EUPHORIC MOOD [None]
  - IMPAIRED DRIVING ABILITY [None]
  - IMPAIRED WORK ABILITY [None]
  - THINKING ABNORMAL [None]
  - VERTIGO [None]
  - WEIGHT INCREASED [None]
